FAERS Safety Report 8503597 (Version 4)
Quarter: 2013Q1

REPORT INFORMATION
  Report Type: Spontaneous
  Country: US (occurrence: US)
  Receive Date: 20120411
  Receipt Date: 20130214
  Transmission Date: 20140127
  Serious: Yes (Hospitalization)
  Sender: FDA-Public Use
  Company Number: US-BAYER-2012-033392

PATIENT
  Age: 21 Year
  Sex: Female
  Weight: 120.18 kg

DRUGS (6)
  1. OCELLA [Suspect]
     Dosage: UNK
     Dates: start: 20091022, end: 200911
  2. GIANVI [Suspect]
     Dosage: UNK
     Dates: start: 20101102, end: 201109
  3. OXYCODONE/APAP [Concomitant]
     Dosage: 5/325 MG, UNK
  4. CEPHALEXIN [Concomitant]
     Dosage: 500 MG, UNK
  5. PROMETHAZINE [Concomitant]
     Dosage: 25 MG, UNK
  6. HYDROCODONE W/APAP [Concomitant]
     Dosage: 5/500 MG, UNK

REACTIONS (4)
  - Pulmonary embolism [None]
  - Deep vein thrombosis [None]
  - Injury [None]
  - Emotional distress [None]
